FAERS Safety Report 24184845 (Version 2)
Quarter: 2024Q3

REPORT INFORMATION
  Report Type: Spontaneous
  Country: US (occurrence: US)
  Receive Date: 20240807
  Receipt Date: 20240826
  Transmission Date: 20241016
  Serious: No
  Sender: PFIZER
  Company Number: US-PFIZER INC-202400231500

PATIENT
  Age: 53 Year
  Sex: Female

DRUGS (1)
  1. EUCRISA [Suspect]
     Active Substance: CRISABOROLE
     Dosage: UP TO 100 GRAMS PER 30 DAYS

REACTIONS (2)
  - Vulvovaginal pruritus [Unknown]
  - Off label use [Unknown]
